FAERS Safety Report 20391503 (Version 1)
Quarter: 2022Q1

REPORT INFORMATION
  Report Type: Spontaneous
  Country: US (occurrence: None)
  Receive Date: 20220128
  Receipt Date: 20220128
  Transmission Date: 20220423
  Serious: Yes (Other)
  Sender: FDA-Public Use
  Company Number: None

PATIENT
  Sex: Female

DRUGS (7)
  1. BENLYSTA [Suspect]
     Active Substance: BELIMUMAB
     Indication: Systemic lupus erythematosus
     Dosage: FREQUENCY : WEEKLY;?
     Route: 058
     Dates: start: 20180222
  2. BENLYSTA [Concomitant]
     Active Substance: BELIMUMAB
  3. GABAPENTIN [Concomitant]
     Active Substance: GABAPENTIN
  4. SYMPROIC TAB [Concomitant]
  5. TAZORAC [Concomitant]
     Active Substance: TAZAROTENE
  6. TRAMADOL HCL TAB [Concomitant]
  7. ZOLPIDEM TAB [Concomitant]

REACTIONS (1)
  - Breast cancer [None]
